FAERS Safety Report 7740965-3 (Version None)
Quarter: 2011Q3

REPORT INFORMATION
  Report Type: 
  Country: None (occurrence: None)
  Receive Date: 20110909
  Receipt Date: 20110906
  Transmission Date: 20111222
  Serious: Yes (Death, Other)
  Sender: FDA-Public Use
  Company Number: US-PFIZER INC-2011208802

PATIENT
  Sex: Male

DRUGS (4)
  1. KETOCONAZOLE [Concomitant]
     Indication: PROSTATE CANCER
     Dosage: UNK
  2. HYDROCORTISONE [Suspect]
     Indication: PROSTATE CANCER
     Dosage: UNK
  3. DOXAZOSIN MESILATE [Suspect]
     Indication: BLADDER DISORDER
     Dosage: 8 MG, DAILY
  4. CARVEDILOL [Concomitant]
     Indication: HYPERTENSION
     Dosage: UNK

REACTIONS (16)
  - HYDRONEPHROSIS [None]
  - INCORRECT DOSE ADMINISTERED [None]
  - ORTHOSTATIC HYPERTENSION [None]
  - PLEURAL EFFUSION [None]
  - BLOOD CREATININE INCREASED [None]
  - DYSPNOEA [None]
  - SEPSIS [None]
  - BLOOD GLUCOSE INCREASED [None]
  - ASTHENIA [None]
  - RENAL FAILURE [None]
  - URINARY TRACT INFECTION [None]
  - DEHYDRATION [None]
  - HYPOXIA [None]
  - DEATH [None]
  - HAEMATOCRIT DECREASED [None]
  - GAIT DISTURBANCE [None]
